FAERS Safety Report 8229197-2 (Version None)
Quarter: 2012Q1

REPORT INFORMATION
  Report Type: 
  Country: None (occurrence: None)
  Receive Date: 20120322
  Receipt Date: 20110713
  Transmission Date: 20120608
  Serious: Yes (Other)
  Sender: FDA-Public Use
  Company Number: US-ROCHE-785019

PATIENT
  Sex: Female

DRUGS (6)
  1. ACCUTANE [Suspect]
     Indication: ACNE
     Route: 065
  2. ACCUTANE [Suspect]
     Route: 065
     Dates: start: 19980730, end: 19980901
  3. ORTHO TRI-CYCLEN [Concomitant]
  4. ACCUTANE [Suspect]
     Route: 065
  5. IBUPROFEN (ADVIL) [Concomitant]
  6. BCP [Concomitant]

REACTIONS (7)
  - RASH [None]
  - DRY SKIN [None]
  - CROHN'S DISEASE [None]
  - COLITIS ULCERATIVE [None]
  - ABORTION SPONTANEOUS [None]
  - INFLAMMATORY BOWEL DISEASE [None]
  - MATERNAL EXPOSURE DURING PREGNANCY [None]
